FAERS Safety Report 6183787-X (Version None)
Quarter: 2009Q2

REPORT INFORMATION
  Report Type: 
  Country: None (occurrence: None)
  Receive Date: 20090508
  Receipt Date: 20090309
  Transmission Date: 20091009
  Serious: Yes (Other)
  Sender: FDA-Public Use
  Company Number: US-BAYER-200910304NA

PATIENT
  Age: 67 Year
  Sex: Male
  Weight: 75 kg

DRUGS (25)
  1. MAGNEVIST [Suspect]
     Indication: NUCLEAR MAGNETIC RESONANCE IMAGING
  2. OMNISCAN [Suspect]
     Indication: NUCLEAR MAGNETIC RESONANCE IMAGING
     Dosage: TOTAL DAILY DOSE: 20 ML
     Route: 042
     Dates: start: 20050125, end: 20050125
  3. OMNISCAN [Suspect]
     Dosage: TOTAL DAILY DOSE: 20 ML
     Route: 042
     Dates: start: 20050930, end: 20050930
  4. OPTIMARK [Suspect]
     Indication: NUCLEAR MAGNETIC RESONANCE IMAGING
  5. MULTIHANCE [Suspect]
     Indication: NUCLEAR MAGNETIC RESONANCE IMAGING
  6. PROHANCE [Suspect]
     Indication: NUCLEAR MAGNETIC RESONANCE IMAGING
  7. ALENDRONATE SODIUM [Concomitant]
  8. AMLODIPINE [Concomitant]
  9. AGGRENOX [Concomitant]
  10. CALCIUM ACETATE [Concomitant]
     Dosage: TOTAL DAILY DOSE: 4002 MG
  11. CARBAMAZEPINE [Concomitant]
  12. CLONIDINE HCL [Concomitant]
  13. FERROUS SULFATE TAB [Concomitant]
     Dosage: TOTAL DAILY DOSE: 975 MG
     Dates: start: 20030807
  14. FUROSEMIDE [Concomitant]
  15. METOPROLOL TARTRATE [Concomitant]
  16. PREDNISONE [Concomitant]
  17. SERTRALINE HCL [Concomitant]
  18. SEVELAMER HCL [Concomitant]
     Dosage: TOTAL DAILY DOSE: 4800 MG
  19. SIMVASTATIN [Concomitant]
  20. SODIUM BICARBONATE IN PLASTIC CONTAINER [Concomitant]
  21. ZZIBERET-FOLIC-500 SR [Concomitant]
  22. HEPARIN [Concomitant]
  23. PLAVIX [Concomitant]
  24. EPOGEN [Concomitant]
     Dosage: TOTAL DAILY DOSE: 4000 U
     Route: 058
     Dates: start: 20030807
  25. OXYGEN [Concomitant]
     Dosage: HOME OXYGEN THERAPY

REACTIONS (40)
  - ANHEDONIA [None]
  - ANXIETY [None]
  - ARTHRALGIA [None]
  - ASTHENIA [None]
  - BLISTER [None]
  - BONE DENSITY DECREASED [None]
  - BONE PAIN [None]
  - BURNING SENSATION [None]
  - DEPRESSION [None]
  - DISCOMFORT [None]
  - DRY SKIN [None]
  - ECCHYMOSIS [None]
  - EMOTIONAL DISTRESS [None]
  - ERYTHEMA [None]
  - GAIT DISTURBANCE [None]
  - GENERAL PHYSICAL HEALTH DETERIORATION [None]
  - HYPERTENSION [None]
  - HYPOAESTHESIA [None]
  - IMPAIRED SELF-CARE [None]
  - JOINT RANGE OF MOTION DECREASED [None]
  - JOINT STIFFNESS [None]
  - MOBILITY DECREASED [None]
  - MUSCULAR WEAKNESS [None]
  - MYALGIA [None]
  - NEPHROGENIC SYSTEMIC FIBROSIS [None]
  - PAIN [None]
  - PAIN IN EXTREMITY [None]
  - PAIN OF SKIN [None]
  - PITTING OEDEMA [None]
  - PLANTAR FASCIITIS [None]
  - PRURITUS [None]
  - SCAR [None]
  - SKIN DISORDER [None]
  - SKIN HYPERTROPHY [None]
  - SKIN INDURATION [None]
  - SKIN LESION [None]
  - SKIN TIGHTNESS [None]
  - SKIN WRINKLING [None]
  - SYNOVIAL DISORDER [None]
  - YELLOW SKIN [None]
